FAERS Safety Report 5563159-9 (Version None)
Quarter: 2007Q4

REPORT INFORMATION
  Report Type: 
  Country: None (occurrence: None)
  Receive Date: 20071217
  Receipt Date: 20071213
  Transmission Date: 20080405
  Serious: Yes (Hospitalization)
  Sender: FDA-Public Use
  Company Number: B0499846A

PATIENT
  Age: 58 Year
  Sex: Female

DRUGS (4)
  1. AMOXICILLIN TRIHYDRATE [Suspect]
     Indication: GASTRIC ULCER
     Route: 048
     Dates: start: 20050701, end: 20071117
  2. TAKEPRON [Suspect]
     Indication: GASTRIC ULCER
     Dosage: 30MG TWICE PER DAY
     Route: 048
     Dates: start: 20071112, end: 20071117
  3. FLAGYL [Suspect]
     Indication: GASTRIC ULCER
     Dosage: 250MG TWICE PER DAY
     Route: 048
     Dates: start: 20071112, end: 20071117
  4. MICARDIS [Concomitant]
     Dosage: 40MG FOUR TIMES PER DAY
     Route: 048
     Dates: start: 20061208

REACTIONS (5)
  - ABDOMINAL PAIN [None]
  - COLITIS ISCHAEMIC [None]
  - DIARRHOEA [None]
  - HAEMATOCHEZIA [None]
  - PSEUDOMEMBRANOUS COLITIS [None]
